FAERS Safety Report 5937140-1 (Version None)
Quarter: 2008Q4

REPORT INFORMATION
  Report Type: 
  Country: None (occurrence: None)
  Receive Date: 20081031
  Receipt Date: 20081023
  Transmission Date: 20090506
  Serious: Yes (Hospitalization)
  Sender: FDA-Public Use
  Company Number: PHHY2008GT25654

PATIENT
  Age: 70 Year
  Sex: Male

DRUGS (5)
  1. TRILEPTAL [Suspect]
     Indication: CONVULSION
     Dosage: 600 MG, QD
     Route: 048
  2. METFORMIN HCL [Concomitant]
     Dosage: UNK
     Route: 048
  3. APROVEL [Concomitant]
     Dosage: UNK
     Route: 048
  4. TRITACE [Concomitant]
     Dosage: UNK
     Route: 048
  5. LAMOTRIGINE [Concomitant]
     Dosage: UNK
     Route: 048

REACTIONS (4)
  - DEPRESSED LEVEL OF CONSCIOUSNESS [None]
  - HYPERTENSION [None]
  - HYPOCHLORAEMIA [None]
  - HYPONATRAEMIA [None]
